FAERS Safety Report 8466736 (Version 3)
Quarter: 2012Q4

REPORT INFORMATION
  Report Type: 
  Country: US (occurrence: US)
  Receive Date: 20120229
  Receipt Date: 20121105
  Transmission Date: 20130627
  Serious: Yes (Hospitalization, Other)
  Sender: FDA-Public Use
  Company Number: PHEH2011US011599

PATIENT
  Sex: Female

DRUGS (2)
  1. TEGRETOL [Suspect]
     Indication: CONVULSION
     Dates: start: 20010425, end: 200105
  2. TEGRETOL [Suspect]
     Indication: GRAND MAL CONVULSION

REACTIONS (37)
  - Stevens-Johnson syndrome [Unknown]
  - Rash [Unknown]
  - Pyrexia [Unknown]
  - Lip swelling [Unknown]
  - Chapped lips [Unknown]
  - Scar [Unknown]
  - Deformity [Unknown]
  - Disability [Unknown]
  - Pain [Unknown]
  - Cellulitis [Unknown]
  - Skin infection [Unknown]
  - Vulva cyst [Unknown]
  - Breast mass [Unknown]
  - Breast swelling [Unknown]
  - Hearing impaired [Unknown]
  - Urinary tract infection [Unknown]
  - Dysuria [Unknown]
  - Leukopenia [Unknown]
  - Thyroiditis [Unknown]
  - Photophobia [Unknown]
  - Mouth ulceration [Unknown]
  - Meibomian gland dysfunction [Unknown]
  - Dental caries [Unknown]
  - Periodontitis [Unknown]
  - Swelling face [Unknown]
  - Dizziness [Unknown]
  - Pyuria [Unknown]
  - Haematuria [Unknown]
  - Wound [Unknown]
  - Rash pruritic [Unknown]
  - Vulvovaginal pruritus [Unknown]
  - Genital discharge [Unknown]
  - Vulvovaginal candidiasis [Unknown]
  - Local swelling [Unknown]
  - Essential hypertension [Unknown]
  - Toothache [Unknown]
  - Paraesthesia [Unknown]
